FAERS Safety Report 8454605 (Version 4)
Quarter: 2013Q1

REPORT INFORMATION
  Report Type: Spontaneous
  Country: GR (occurrence: GR)
  Receive Date: 20120312
  Receipt Date: 20130125
  Transmission Date: 20140127
  Serious: Yes (Death)
  Sender: FDA-Public Use
  Company Number: GR-PFIZER INC-2012060250

PATIENT
  Sex: Male

DRUGS (1)
  1. LINEZOLID [Suspect]
     Dosage: 600 MG DAILY DOSE

REACTIONS (2)
  - Respiratory failure [Fatal]
  - Disease progression [Fatal]
